FAERS Safety Report 9834179 (Version 1)
Quarter: 2014Q1

REPORT INFORMATION
  Report Type: Spontaneous
  Country: US (occurrence: US)
  Receive Date: 20140122
  Receipt Date: 20140122
  Transmission Date: 20141002
  Serious: No
  Sender: FDA-Public Use
  Company Number: US-BAUSCH-BL-2013-002453

PATIENT
  Age: 17 Year
  Sex: Female

DRUGS (1)
  1. ALAWAY (KETOTIFEN FUMARATE OPHTHALMIC SOLUTION) [Suspect]
     Indication: EYE ALLERGY
     Dosage: 2 DROPS IN EACH EYE, ONCE DAILY
     Route: 047
     Dates: start: 20130425, end: 20130426

REACTIONS (5)
  - Hypersensitivity [Recovering/Resolving]
  - Eye irritation [Recovering/Resolving]
  - Eye swelling [Recovering/Resolving]
  - Ocular hyperaemia [Recovering/Resolving]
  - Vision blurred [Recovering/Resolving]
